FAERS Safety Report 13545958 (Version 2)
Quarter: 2017Q3

REPORT INFORMATION
  Report Type: Spontaneous
  Country: US (occurrence: US)
  Receive Date: 20170515
  Receipt Date: 20170724
  Transmission Date: 20171127
  Serious: Yes (Other)
  Sender: FDA-Public Use
  Company Number: US-BAYER-2017-084507

PATIENT
  Age: 66 Year
  Sex: Female
  Weight: 50 kg

DRUGS (1)
  1. MILK OF MAGNESIA CHERRY [Suspect]
     Active Substance: MAGNESIUM HYDROXIDE
     Indication: HAEMORRHOIDS
     Dosage: 2 DF, QD;(2 TBSP EVERY NIGHT )
     Route: 048
     Dates: start: 2000

REACTIONS (7)
  - Drug ineffective [Unknown]
  - Incorrect drug administration duration [Unknown]
  - Drug ineffective [Unknown]
  - Liquid product physical issue [None]
  - Drug dependence [Unknown]
  - Product taste abnormal [None]
  - Product use in unapproved indication [Unknown]

NARRATIVE: CASE EVENT DATE: 2000
